FAERS Safety Report 6594432-3 (Version None)
Quarter: 2010Q1

REPORT INFORMATION
  Report Type: 
  Country: None (occurrence: None)
  Receive Date: 20100222
  Receipt Date: 20100215
  Transmission Date: 20100710
  Serious: Yes (Death, Life-Threatening)
  Sender: FDA-Public Use
  Company Number: D0066482A

PATIENT
  Sex: Male

DRUGS (33)
  1. FRAXIPARIN [Suspect]
     Indication: THROMBOSIS PROPHYLAXIS
     Dosage: .6ML SINGLE DOSE
     Route: 058
     Dates: start: 20080103, end: 20080103
  2. VIANI FORTE [Suspect]
     Indication: CHRONIC OBSTRUCTIVE PULMONARY DISEASE
     Route: 055
     Dates: start: 20080103, end: 20080103
  3. CEFUROXIME [Suspect]
     Dosage: 500MG TWICE PER DAY
     Route: 048
     Dates: start: 20071222, end: 20071231
  4. CEFUROXIME [Suspect]
     Route: 042
     Dates: start: 20080104
  5. ALBUTEROL [Suspect]
     Indication: CHRONIC OBSTRUCTIVE PULMONARY DISEASE
     Route: 055
     Dates: start: 20071221, end: 20080103
  6. ERYTHROMYCIN [Suspect]
     Dosage: 500MG THREE TIMES PER DAY
     Route: 048
     Dates: start: 20071223, end: 20071231
  7. DICLOFENAC [Suspect]
     Indication: PAIN
     Dosage: 70MG PER DAY
     Route: 048
     Dates: start: 20041213, end: 20080103
  8. VOLTAREN EYE DROPS [Suspect]
     Indication: PAIN
     Route: 050
     Dates: start: 20071221, end: 20080103
  9. ACETYLCYSTEINE [Suspect]
     Indication: CHRONIC OBSTRUCTIVE PULMONARY DISEASE
     Route: 042
     Dates: start: 20071221, end: 20071231
  10. LASIX [Suspect]
     Dosage: 40MG TWICE PER DAY
     Route: 042
     Dates: start: 20071221, end: 20071231
  11. CLEXANE [Suspect]
     Indication: THROMBOSIS PROPHYLAXIS
     Dosage: .8ML PER DAY
     Route: 058
     Dates: start: 20071221, end: 20080103
  12. TOREM [Suspect]
     Indication: CARDIOMYOPATHY
     Dosage: 10MG VARIABLE DOSE
     Route: 048
     Dates: start: 20071221, end: 20080103
  13. AMARYL [Suspect]
     Indication: DIABETES MELLITUS
     Dosage: 1MG TWICE PER DAY
     Route: 048
     Dates: start: 20041213, end: 20080103
  14. FORMOTEROL FUMARATE [Suspect]
     Indication: CHRONIC OBSTRUCTIVE PULMONARY DISEASE
     Route: 055
     Dates: start: 20041213, end: 20080103
  15. BUDECORT [Suspect]
     Indication: CHRONIC OBSTRUCTIVE PULMONARY DISEASE
     Route: 055
     Dates: start: 20041213, end: 20080103
  16. RAMIPRIL [Suspect]
     Indication: CARDIOMYOPATHY
     Dosage: 1.25MG TWICE PER DAY
     Route: 048
     Dates: start: 20050101, end: 20080103
  17. BISOMERCK [Suspect]
     Indication: CARDIOMYOPATHY
     Dosage: 8.75MG TWICE PER DAY
     Route: 048
     Dates: start: 20051201, end: 20080103
  18. SODIUM CHLORIDE [Suspect]
     Route: 042
     Dates: start: 20071221, end: 20080103
  19. DEXPANTHENOL [Suspect]
     Route: 050
     Dates: start: 20071221, end: 20080103
  20. POTASSIUM CHLORIDE [Suspect]
     Dosage: 7.5MG UNKNOWN
     Route: 042
     Dates: start: 20080104, end: 20080106
  21. AMIODARONE HCL [Suspect]
     Indication: CARDIOMYOPATHY
     Route: 042
     Dates: start: 20080104
  22. INSULIN [Suspect]
     Indication: DIABETES MELLITUS
     Route: 042
     Dates: start: 20080104
  23. TRANEXAMIC ACID [Suspect]
     Indication: CARDIOMYOPATHY
     Route: 042
     Dates: start: 20080104
  24. ARTERENOL [Suspect]
     Route: 042
     Dates: start: 20080104
  25. SUPRARENIN [Suspect]
     Route: 042
     Dates: start: 20080104
  26. HEPARIN [Suspect]
     Indication: THROMBOSIS PROPHYLAXIS
     Route: 042
     Dates: start: 20080104
  27. DEXTROSE 5% [Suspect]
     Indication: ELECTROLYTE SUBSTITUTION THERAPY
     Route: 042
     Dates: start: 20080104, end: 20080107
  28. PROPOFOL [Suspect]
     Route: 042
     Dates: start: 20080104
  29. JONOSTERIL [Suspect]
     Indication: ELECTROLYTE SUBSTITUTION THERAPY
     Route: 042
     Dates: start: 20080104
  30. MILRINONE [Suspect]
     Indication: CARDIOMYOPATHY
     Route: 042
     Dates: start: 20080106
  31. FUROSEMID [Suspect]
     Route: 042
     Dates: start: 20080106
  32. REMIFENTANIL [Concomitant]
     Indication: PAIN
     Dosage: 5MG SINGLE DOSE
     Route: 042
     Dates: start: 20080107, end: 20080107
  33. MULTIPLE MEDICATION [Concomitant]
     Route: 065

REACTIONS (7)
  - BLISTER [None]
  - DEATH [None]
  - EPIDERMOLYSIS [None]
  - ERYTHEMA [None]
  - NIKOLSKY'S SIGN [None]
  - RENAL FAILURE [None]
  - TOXIC EPIDERMAL NECROLYSIS [None]
